FAERS Safety Report 15534796 (Version 1)
Quarter: 2018Q4

REPORT INFORMATION
  Report Type: Spontaneous
  Country: US (occurrence: US)
  Receive Date: 20181022
  Receipt Date: 20181022
  Transmission Date: 20190205
  Serious: No
  Sender: FDA-Public Use
  Company Number: US-TEVA-2018-US-963902

PATIENT
  Sex: Female

DRUGS (1)
  1. DIAZEPAM. [Suspect]
     Active Substance: DIAZEPAM
     Indication: EPILEPSY
     Route: 065

REACTIONS (7)
  - Irritability [Unknown]
  - Malaise [Unknown]
  - Feeding disorder [Unknown]
  - Skin disorder [Unknown]
  - Nausea [Unknown]
  - Pruritus [Unknown]
  - Insomnia [Unknown]
